FAERS Safety Report 4394932-0 (Version None)
Quarter: 2004Q3

REPORT INFORMATION
  Report Type: 
  Country: None (occurrence: None)
  Receive Date: 20040712
  Receipt Date: 20040525
  Transmission Date: 20050211
  Serious: Yes (Death, Life-Threatening)
  Sender: FDA-Public Use
  Company Number: JP-GLAXOSMITHKLINE-B0333959A

PATIENT
  Age: 72 Year
  Sex: Male
  Weight: 61 kg

DRUGS (12)
  1. PAXIL [Suspect]
     Indication: SENILE DEMENTIA
     Route: 048
     Dates: start: 20040501, end: 20040523
  2. DEPAKENE [Concomitant]
     Route: 048
     Dates: end: 20040524
  3. CONTOMIN [Concomitant]
     Dosage: 50MG PER DAY
     Route: 048
     Dates: end: 20021219
  4. CONTOMIN [Concomitant]
     Dosage: 25MG PER DAY
     Route: 048
     Dates: start: 20021219, end: 20030307
  5. BIPERIDEN HYDROCHLORIDE [Concomitant]
     Dosage: 2MG PER DAY
     Route: 048
     Dates: end: 20030912
  6. FLUNITRAZEPAM [Concomitant]
     Dosage: 2MG PER DAY
     Route: 048
     Dates: end: 20040524
  7. TINELAC [Concomitant]
     Dosage: 48MG PER DAY
     Route: 048
     Dates: end: 20040524
  8. NIVADIL [Concomitant]
     Dosage: 4MG PER DAY
     Route: 048
     Dates: start: 20021207, end: 20030221
  9. TIAPRIDE HYDROCHLORIDE [Concomitant]
     Dosage: 50MG PER DAY
     Route: 048
     Dates: start: 20031207, end: 20040524
  10. JUVELA [Concomitant]
     Dosage: 100MG PER DAY
     Route: 048
     Dates: start: 20021207, end: 20021219
  11. UNSPECIFIED DRUG [Concomitant]
     Dosage: 1.2G PER DAY
     Route: 048
     Dates: start: 20021219, end: 20030221
  12. SELENICA R [Concomitant]
     Dosage: 800MG PER DAY
     Route: 048
     Dates: start: 20030212, end: 20040509

REACTIONS (12)
  - ALANINE AMINOTRANSFERASE INCREASED [None]
  - APNOEA [None]
  - ASPARTATE AMINOTRANSFERASE INCREASED [None]
  - BODY TEMPERATURE DECREASED [None]
  - CARDIAC ARREST [None]
  - CARDIO-RESPIRATORY ARREST [None]
  - HEPATIC FAILURE [None]
  - HEPATIC FUNCTION ABNORMAL [None]
  - HYPERHIDROSIS [None]
  - OXYGEN SATURATION DECREASED [None]
  - RESPIRATORY ARREST [None]
  - WHEEZING [None]
